FAERS Safety Report 16284202 (Version 1)
Quarter: 2019Q2

REPORT INFORMATION
  Report Type: Spontaneous
  Country: AU (occurrence: AU)
  Receive Date: 20190507
  Receipt Date: 20190507
  Transmission Date: 20190711
  Serious: Yes (Other)
  Sender: FDA-Public Use
  Company Number: AU-BAXTER-2019BAX008964

PATIENT

DRUGS (12)
  1. WATER FOR INJECTION [Suspect]
     Active Substance: WATER
     Indication: NUTRITIONAL SUPPLEMENTATION
     Dosage: AS PART OF STARTER PRETERM TPN BAG
     Route: 065
     Dates: start: 20190423, end: 20190424
  2. SODIUM IODIDE [Suspect]
     Active Substance: SODIUM IODIDE
     Indication: NUTRITIONAL SUPPLEMENTATION
     Dosage: AS PART OF STARTER PRETERM TPN BAG
     Route: 065
     Dates: start: 20190423, end: 20190424
  3. CALCIUM GLUCONATE. [Suspect]
     Active Substance: CALCIUM GLUCONATE
     Indication: NUTRITIONAL SUPPLEMENTATION
     Dosage: (STRENGTH: 0.22 MMOL/L); AS PART OF STARTER PRETERM TPN BAG
     Route: 065
     Dates: start: 20190423, end: 20190424
  4. PRIMENE 10% AMINO ACIDS SOLUTION FOR INJECTION BOTTLE [Suspect]
     Active Substance: AMINO ACIDS
     Indication: NUTRITIONAL SUPPLEMENTATION
     Dosage: AS PART OF STARTER PRETERM TPN BAG
     Route: 065
     Dates: start: 20190423, end: 20190424
  5. HEPARIN SODIUM. [Suspect]
     Active Substance: HEPARIN SODIUM
     Indication: NUTRITIONAL SUPPLEMENTATION
     Dosage: AS PART OF STARTER PRETERM TPN BAG
     Route: 065
     Dates: start: 20190423, end: 20190424
  6. SELENIUM [Suspect]
     Active Substance: SELENIUM
     Indication: NUTRITIONAL SUPPLEMENTATION
     Dosage: AS PART OF STARTER PRETERM TPN BAG
     Route: 065
     Dates: start: 20190423, end: 20190424
  7. SODIUM PHOSPHATE\SODIUM PHOSPHATE, MONOBASIC [Suspect]
     Active Substance: SODIUM PHOSPHATE\SODIUM PHOSPHATE, MONOBASIC
     Indication: NUTRITIONAL SUPPLEMENTATION
     Dosage: (STRENGTH: 1 MMOL/ML); AS PART OF STARTER PRETERM TPN BAG
     Route: 065
     Dates: start: 20190423, end: 20190424
  8. BAXTER 70% ANHYDROUS GLUCOSE 350G_500ML INJECTION BP BAG AHB0293 [Suspect]
     Active Substance: DEXTROSE
     Indication: NUTRITIONAL SUPPLEMENTATION
     Dosage: AS PART OF STARTER PRETERM TPN BAG
     Route: 065
     Dates: start: 20190423, end: 20190424
  9. MAGNESIUM CHLORIDE. [Suspect]
     Active Substance: MAGNESIUM CHLORIDE
     Indication: NUTRITIONAL SUPPLEMENTATION
     Dosage: (STRENGTH: 1 MMOL/ML); AS PART OF STARTER PRETERM TPN BAG
     Route: 065
     Dates: start: 20190423, end: 20190424
  10. NYSTATIN. [Suspect]
     Active Substance: NYSTATIN
     Indication: ANTIFUNGAL PROPHYLAXIS
     Dosage: TDS
     Route: 048
     Dates: start: 20190423
  11. ZINC. [Suspect]
     Active Substance: ZINC
     Indication: NUTRITIONAL SUPPLEMENTATION
     Dosage: AS PART OF STARTER PRETERM TPN BAG
     Route: 065
     Dates: start: 20190423, end: 20190424
  12. CAFFEINE. [Suspect]
     Active Substance: CAFFEINE
     Indication: APNOEA
     Dosage: AS PART OF CAFFEINE IV BAXTER SYRINGE (COMPOUNDED PRODUCT); VIA PERIPHERAL CANNULA
     Route: 042
     Dates: start: 20190423

REACTIONS (1)
  - Hypercalcaemia [Recovered/Resolved with Sequelae]

NARRATIVE: CASE EVENT DATE: 201904
